FAERS Safety Report 13792021 (Version 1)
Quarter: 2017Q3

REPORT INFORMATION
  Report Type: Spontaneous
  Country: US (occurrence: US)
  Receive Date: 20170725
  Receipt Date: 20170725
  Transmission Date: 20171127
  Serious: No
  Sender: FDA-Public Use
  Company Number: US-ROCHE-1938545

PATIENT
  Sex: Male

DRUGS (2)
  1. ESBRIET [Suspect]
     Active Substance: PIRFENIDONE
     Indication: IDIOPATHIC PULMONARY FIBROSIS
     Dosage: 3 TABLETS 3 TIMES A DAY ;ONGOING: NO
     Route: 048
     Dates: start: 201701
  2. ESBRIET [Suspect]
     Active Substance: PIRFENIDONE
     Dosage: 1 PILL A DAY TIMES 1 MONTH ;ONGOING: YES
     Route: 048

REACTIONS (2)
  - Decreased appetite [Unknown]
  - Dyspepsia [Unknown]
